FAERS Safety Report 8561433-5 (Version None)
Quarter: 2012Q3

REPORT INFORMATION
  Report Type: 
  Country: None (occurrence: None)
  Receive Date: 20120802
  Receipt Date: 20120727
  Transmission Date: 20120928
  Serious: Yes (Other)
  Sender: FDA-Public Use
  Company Number: JP-GLAXOSMITHKLINE-B0802135A

PATIENT
  Sex: Male

DRUGS (4)
  1. FLIVAS [Concomitant]
     Dosage: 75MG PER DAY
     Route: 048
     Dates: start: 20110201, end: 20120501
  2. ALLOPURINOL [Concomitant]
     Dosage: 100MG PER DAY
     Route: 048
     Dates: start: 20100901, end: 20110701
  3. DUTASTERIDE [Suspect]
     Indication: BENIGN PROSTATIC HYPERPLASIA
     Dosage: .5MG PER DAY
     Route: 048
     Dates: start: 20100112, end: 20110801
  4. EVIPROSTAT [Concomitant]
     Dosage: 9IUAX PER DAY
     Route: 048
     Dates: start: 20100901, end: 20110901

REACTIONS (3)
  - HEPATIC FUNCTION ABNORMAL [None]
  - ASPARTATE AMINOTRANSFERASE INCREASED [None]
  - ALANINE AMINOTRANSFERASE INCREASED [None]
